FAERS Safety Report 13304543 (Version 3)
Quarter: 2017Q3

REPORT INFORMATION
  Report Type: Spontaneous
  Country: HR (occurrence: HR)
  Receive Date: 20170308
  Receipt Date: 20170720
  Transmission Date: 20171127
  Serious: Yes (Death, Hospitalization, Other)
  Sender: FDA-Public Use
  Company Number: HR-TEVA-745935ACC

PATIENT
  Age: 70 Year
  Sex: Female

DRUGS (6)
  1. GLUFORMIN [Suspect]
     Active Substance: METFORMIN HYDROCHLORIDE
     Indication: TYPE 2 DIABETES MELLITUS
     Route: 048
  2. AMLODIPIN [Concomitant]
     Active Substance: AMLODIPINE BESYLATE
     Indication: PRODUCT USED FOR UNKNOWN INDICATION
     Route: 065
  3. NOVOMIX [Suspect]
     Active Substance: INSULIN ASPART
     Indication: TYPE 2 DIABETES MELLITUS
     Dosage: 62 IU (INTERNATIONAL UNIT) DAILY;
     Route: 058
  4. INSULIN ASPART PROTAMINE CRYSTALLINE RECOMBINANT [Concomitant]
     Indication: TYPE 2 DIABETES MELLITUS
     Dosage: 50 PERCENT INSULIN ASPART/50 PERCENT PROTAMINECRYSTALLIZED INSULIN AT A DOSE OF 26 IU, 16 IU AND 20
     Route: 065
  5. FUROSEMID [Concomitant]
     Active Substance: FUROSEMIDE
     Indication: PRODUCT USED FOR UNKNOWN INDICATION
     Route: 065
  6. BISOPROLOL [Concomitant]
     Active Substance: BISOPROLOL
     Indication: PRODUCT USED FOR UNKNOWN INDICATION
     Route: 065

REACTIONS (4)
  - Respiratory failure [Fatal]
  - Renal failure [Fatal]
  - Lactic acidosis [Fatal]
  - Hypoglycaemia [Recovering/Resolving]
